FAERS Safety Report 5306801-X (Version None)
Quarter: 2007Q2

REPORT INFORMATION
  Report Type: 
  Country: None (occurrence: None)
  Receive Date: 20070424
  Receipt Date: 20070424
  Transmission Date: 20071010
  Serious: Yes (Life-Threatening)
  Sender: FDA-Public Use
  Company Number: None

PATIENT
  Sex: Male
  Weight: 69 kg

DRUGS (11)
  1. PIPERACILLIN AND TAZOBACTAM [Suspect]
     Indication: INFECTION
     Dosage: 4.5GM Q6 IV  3 DOSES
     Route: 042
     Dates: start: 20061107, end: 20061108
  2. HEPARIN [Suspect]
     Indication: THROMBOSIS PROPHYLAXIS
     Dosage: 5000 UNITS BID-TID
     Dates: start: 20061023, end: 20061108
  3. ARIPIPRAZOLE [Concomitant]
  4. FENTANYL [Concomitant]
  5. FLUCONAZOLE [Concomitant]
  6. FUROSEMIDE [Concomitant]
  7. LAMOTRIGINE [Concomitant]
  8. LANSOPRAZOLE [Concomitant]
  9. MIDAZOLAM HCL [Concomitant]
  10. OLANZAPINE [Concomitant]
  11. SERTRALINE [Concomitant]

REACTIONS (3)
  - ANAEMIA [None]
  - HAEMOLYSIS [None]
  - THROMBOCYTOPENIA [None]
